FAERS Safety Report 13432884 (Version 1)
Quarter: 2017Q2

REPORT INFORMATION
  Report Type: Spontaneous
  Country: JP (occurrence: JP)
  Receive Date: 20170412
  Receipt Date: 20170412
  Transmission Date: 20170830
  Serious: Yes (Hospitalization, Other)
  Sender: FDA-Public Use
  Company Number: JP-GLAXOSMITHKLINE-JP2017052163

PATIENT
  Age: 63 Year
  Sex: Male
  Weight: 55 kg

DRUGS (8)
  1. AMOXICILLIN. [Suspect]
     Active Substance: AMOXICILLIN
     Indication: HELICOBACTER INFECTION
  2. MECOBALAMIN [Concomitant]
     Active Substance: METHYLCOBALAMIN
  3. AMLODIPINE BESILATE [Concomitant]
     Active Substance: AMLODIPINE BESYLATE
  4. CLARITHROMYCIN. [Suspect]
     Active Substance: CLARITHROMYCIN
     Indication: HELICOBACTER INFECTION
  5. BETAHISTINE MESILATE [Concomitant]
     Active Substance: BETAHISTINE MESILATE
  6. ADENOSINE TRIPHOSPHATE DISODIUM HYDRATE [Concomitant]
  7. CLOTIAZEPAM [Concomitant]
     Active Substance: CLOTIAZEPAM
  8. LANSOPRAZOLE. [Suspect]
     Active Substance: LANSOPRAZOLE
     Indication: HELICOBACTER INFECTION

REACTIONS (2)
  - Colitis [Recovering/Resolving]
  - Colitis ulcerative [Recovering/Resolving]
